FAERS Safety Report 9504755 (Version 1)
Quarter: 2013Q3

REPORT INFORMATION
  Report Type: Spontaneous
  Country: DE (occurrence: DE)
  Receive Date: 20130906
  Receipt Date: 20130906
  Transmission Date: 20140515
  Serious: Yes (Life-Threatening)
  Sender: FDA-Public Use
  Company Number: GXKR2013DE002943

PATIENT
  Sex: 0

DRUGS (11)
  1. CLOMIPRAMINE [Suspect]
     Indication: OBSESSIVE-COMPULSIVE DISORDER
     Dosage: 25 MG, BID
     Route: 048
     Dates: start: 20130801, end: 20130816
  2. IBUPROFEN [Concomitant]
     Dosage: 600 MG, TID
     Route: 048
  3. CEFTRIAXON [Concomitant]
     Indication: URINARY TRACT INFECTION
  4. VALORON N                          /01617301/ [Concomitant]
     Dosage: 1 DF, BID
     Route: 048
  5. PANTOZOL [Concomitant]
     Dosage: 20 MG, QD
     Route: 048
  6. AMLODIPINE MESILATE [Concomitant]
     Dosage: 5 MG, QD
     Route: 048
  7. BISOPROLOL [Concomitant]
     Dosage: 5 MG, QD
     Route: 048
  8. DOXEPIN [Concomitant]
     Dosage: 100 MG, UNK
     Route: 048
  9. FLUOXETIN [Concomitant]
     Dosage: 40 MG, QD
     Route: 048
  10. RISPERIDON [Concomitant]
     Dosage: 3 MG, BID
     Route: 048
  11. COUMADINE [Concomitant]
     Dosage: ACCORDING TO REGIMEN
     Route: 048

REACTIONS (2)
  - Rhabdomyolysis [Recovering/Resolving]
  - Renal failure acute [Recovering/Resolving]
